FAERS Safety Report 20366338 (Version 1)
Quarter: 2022Q1

REPORT INFORMATION
  Report Type: Spontaneous
  Country: US (occurrence: US)
  Receive Date: 20220123
  Receipt Date: 20220123
  Transmission Date: 20220423
  Serious: No
  Sender: FDA-Public Use
  Company Number: US-ACORDA-ACO_169227_2021

PATIENT

DRUGS (1)
  1. DALFAMPRIDINE [Suspect]
     Active Substance: DALFAMPRIDINE
     Indication: Hereditary ataxia
     Dosage: 10 MILLIGRAM (SUSTAINED RELEASE)
     Route: 065

REACTIONS (1)
  - Drug ineffective for unapproved indication [Unknown]
